FAERS Safety Report 10799167 (Version 1)
Quarter: 2015Q1

REPORT INFORMATION
  Report Type: Spontaneous
  Country: US (occurrence: US)
  Receive Date: 20150216
  Receipt Date: 20150216
  Transmission Date: 20150721
  Serious: No
  Sender: FDA-Public Use
  Company Number: US-ALLERGAN-1402026US

PATIENT
  Age: 42 Year
  Sex: Female

DRUGS (3)
  1. RESTASIS [Suspect]
     Active Substance: CYCLOSPORINE
     Indication: DRY EYE
     Dosage: 2 GTT, BID
     Route: 047
     Dates: start: 20140117, end: 20140127
  2. METOPROLOL [Concomitant]
     Active Substance: METOPROLOL
     Indication: HEART RATE IRREGULAR
  3. FRESH COAT [Concomitant]
     Indication: PRODUCT USED FOR UNKNOWN INDICATION
     Route: 047

REACTIONS (8)
  - Hypersensitivity [Recovering/Resolving]
  - Eye irritation [Recovered/Resolved]
  - Eye irritation [Recovered/Resolved]
  - Erythema of eyelid [Recovering/Resolving]
  - Eyelid irritation [Recovering/Resolving]
  - Eyelid oedema [Recovering/Resolving]
  - Ocular hyperaemia [Recovered/Resolved]
  - Eyelid exfoliation [Recovering/Resolving]

NARRATIVE: CASE EVENT DATE: 201401
